FAERS Safety Report 8831237 (Version 1)
Quarter: 2012Q4

REPORT INFORMATION
  Report Type: 
  Country: US (occurrence: US)
  Receive Date: 20121008
  Receipt Date: 20121008
  Transmission Date: 20130627
  Serious: Yes (Other)
  Sender: FDA-Public Use
  Company Number: US-ASTRAZENECA-2012SE74442

PATIENT
  Age: 49 Year
  Sex: Female

DRUGS (11)
  1. CAPRELSA [Suspect]
     Route: 048
     Dates: start: 20120818
  2. ADVIL [Concomitant]
  3. CELEBREX [Concomitant]
  4. CYTOMEL [Concomitant]
  5. LOMOTIL [Concomitant]
  6. LOPERAMIDE [Concomitant]
  7. MORPHINE [Concomitant]
  8. SIMETHICONE [Concomitant]
  9. SYNTHROID [Concomitant]
  10. TEMAZEPAM [Concomitant]
  11. TUMS [Concomitant]

REACTIONS (1)
  - Electrocardiogram QT prolonged [Unknown]
